FAERS Safety Report 24590919 (Version 3)
Quarter: 2025Q3

REPORT INFORMATION
  Report Type: Spontaneous
  Country: US (occurrence: US)
  Receive Date: 20241107
  Receipt Date: 20250723
  Transmission Date: 20251020
  Serious: No
  Sender: SUNOVION
  Company Number: US-SUMITOMO PHARMA SWITZERLAND GMBH-2024SPA004634

PATIENT

DRUGS (1)
  1. GEMTESA [Suspect]
     Active Substance: VIBEGRON
     Indication: Product used for unknown indication
     Dosage: 75 MG TAKEN AT 8 PM
     Route: 048

REACTIONS (4)
  - Somnolence [Unknown]
  - Fatigue [Unknown]
  - Dry mouth [Unknown]
  - Therapeutic response shortened [Unknown]
